FAERS Safety Report 19327140 (Version 4)
Quarter: 2021Q3

REPORT INFORMATION
  Report Type: Report from Study
  Country: NL (occurrence: NL)
  Receive Date: 20210528
  Receipt Date: 20210922
  Transmission Date: 20211014
  Serious: Yes (Life-Threatening, Other)
  Sender: FDA-Public Use
  Company Number: NL-PFIZER INC-2021555759

PATIENT
  Age: 5 Year

DRUGS (3)
  1. POLIDOCANOL. [Suspect]
     Active Substance: POLIDOCANOL
     Indication: ANEURYSMAL BONE CYST
     Dosage: UNK
  2. XENETIX 300 [Suspect]
     Active Substance: IOBITRIDOL
     Indication: ANEURYSMAL BONE CYST
     Dosage: UNK
  3. ROPIVACAINE HYDROCHLORIDE. [Suspect]
     Active Substance: ROPIVACAINE HYDROCHLORIDE
     Indication: ANEURYSMAL BONE CYST
     Dosage: UNK

REACTIONS (3)
  - Cardiac arrest [Recovered/Resolved]
  - Hypovolaemic shock [Unknown]
  - Anaphylactic reaction [Recovered/Resolved]
